FAERS Safety Report 18561769 (Version 1)
Quarter: 2020Q4

REPORT INFORMATION
  Report Type: Spontaneous
  Country: US (occurrence: US)
  Receive Date: 20201130
  Receipt Date: 20201130
  Transmission Date: 20210114
  Serious: No
  Sender: FDA-Public Use
  Company Number: US-ROCHE-2588415

PATIENT
  Sex: Female

DRUGS (2)
  1. HERCEPTIN [Suspect]
     Active Substance: TRASTUZUMAB
     Indication: BREAST CANCER
     Dosage: FOR 12 CYCLES; RECEIVED 4 CYCLES SO FAR ;ONGOING: NO
     Route: 042
     Dates: start: 202001
  2. PERJETA [Suspect]
     Active Substance: PERTUZUMAB
     Indication: BREAST CANCER
     Dosage: FOR 12 CYCLES; RECEIVED 4 CYCLES SO FAR ;ONGOING: NO
     Route: 042
     Dates: start: 202001

REACTIONS (1)
  - Neuropathy peripheral [Not Recovered/Not Resolved]
